FAERS Safety Report 7182961-3 (Version None)
Quarter: 2010Q4

REPORT INFORMATION
  Report Type: 
  Country: None (occurrence: None)
  Receive Date: 20101209
  Receipt Date: 20101124
  Transmission Date: 20110411
  Serious: Yes (Hospitalization)
  Sender: FDA-Public Use
  Company Number: FKO201000531

PATIENT
  Age: 72 Year
  Sex: Male

DRUGS (4)
  1. FLUOROURACIL (MANUFACTURER UNKNOWN) (FLUOROURACIL) (FLUOROURACIL) [Suspect]
     Indication: RECTAL CANCER
     Dosage: INTRAVENOUS (NO OTHERWISE SPECIFIED)
     Route: 042
     Dates: start: 20100617
  2. LEUCOVORIN CALCIUM [Suspect]
     Dosage: INTRAVENOUS (NOT OTHERWISE SPECIFIED)
     Route: 042
     Dates: start: 20100617
  3. AVASTIN (BEVACIZUMAB) (BEVACIZUMAB) [Suspect]
     Indication: RECTAL CANCER
     Dosage: (350 MG) INTRAVENOUS (NOT OTHERWISE SPECIFIED)
     Route: 042
     Dates: start: 20100617, end: 20100812
  4. OXALIPLATIN (OXALIPLATIN) (OXALIPLATIN) [Suspect]
     Indication: RECTAL CANCER
     Dosage: (150 MG) INTRAVENOUS NOT OTHERWISE SPECIFIED)
     Route: 042
     Dates: start: 20100617

REACTIONS (4)
  - HAEMORRHAGIC ANAEMIA [None]
  - HYPERTENSION [None]
  - RECTAL HAEMORRHAGE [None]
  - TUMOUR HAEMORRHAGE [None]
